FAERS Safety Report 18579058 (Version 2)
Quarter: 2020Q4

REPORT INFORMATION
  Report Type: Report from Study
  Country: MX (occurrence: MX)
  Receive Date: 20201204
  Receipt Date: 20201219
  Transmission Date: 20210114
  Serious: Yes (Hospitalization, Other)
  Sender: FDA-Public Use
  Company Number: NVSC2020MX318528

PATIENT
  Age: 55 Year
  Sex: Male
  Weight: 68 kg

DRUGS (2)
  1. DASATINIB. [Suspect]
     Active Substance: DASATINIB
     Indication: CHRONIC MYELOID LEUKAEMIA
     Dosage: UNK
     Route: 065
  2. IMATINIB. [Suspect]
     Active Substance: IMATINIB MESYLATE
     Indication: CHRONIC MYELOID LEUKAEMIA
     Dosage: 4 DF, Q24H
     Route: 048
     Dates: start: 201806, end: 202001

REACTIONS (4)
  - Haemorrhage [Unknown]
  - Platelet count decreased [Recovering/Resolving]
  - Decreased immune responsiveness [Unknown]
  - Poisoning [Unknown]

NARRATIVE: CASE EVENT DATE: 20200411
